FAERS Safety Report 7707016-8 (Version None)
Quarter: 2011Q3

REPORT INFORMATION
  Report Type: 
  Country: None (occurrence: None)
  Receive Date: 20110824
  Receipt Date: 20110818
  Transmission Date: 20111222
  Serious: No
  Sender: FDA-Public Use
  Company Number: US-PFIZER INC-2011191770

PATIENT
  Sex: Female

DRUGS (5)
  1. METFORMIN [Concomitant]
     Dosage: UNK
  2. LIPITOR [Suspect]
     Dosage: 80 MG, 1X/DAY
  3. METOPROLOL [Concomitant]
     Dosage: UNK
  4. ENALAPRIL [Concomitant]
     Dosage: UNK
  5. ACARBOSE [Concomitant]
     Dosage: UNK

REACTIONS (5)
  - MUSCLE DISORDER [None]
  - MYALGIA [None]
  - NAUSEA [None]
  - ABDOMINAL PAIN UPPER [None]
  - VOMITING [None]
